FAERS Safety Report 10592398 (Version 2)
Quarter: 2014Q4

REPORT INFORMATION
  Report Type: Spontaneous
  Country: FR (occurrence: None)
  Receive Date: 20141117
  Receipt Date: 20141217
  Transmission Date: 20150529
  Serious: Yes (Hospitalization)
  Sender: FDA-Public Use
  Company Number: AXC-2014-000700

PATIENT
  Age: 32 Year
  Sex: Female

DRUGS (1)
  1. PYLERA [Suspect]
     Active Substance: BISMUTH SUBCITRATE POTASSIUM\METRONIDAZOLE\TETRACYCLINE HYDROCHLORIDE
     Indication: ULCER
     Route: 048
     Dates: start: 201410, end: 20141030

REACTIONS (5)
  - Menstruation delayed [None]
  - Off label use [None]
  - Human chorionic gonadotropin increased [None]
  - Exposure during pregnancy [None]
  - Pregnancy test positive [None]

NARRATIVE: CASE EVENT DATE: 201410
